FAERS Safety Report 5763294-6 (Version None)
Quarter: 2008Q2

REPORT INFORMATION
  Report Type: 
  Country: None (occurrence: None)
  Receive Date: 20080609
  Receipt Date: 20080604
  Transmission Date: 20081010
  Serious: Yes (Death, Hospitalization, Other)
  Sender: FDA-Public Use
  Company Number: GR-GENENTECH-259707

PATIENT
  Age: 70 Year
  Sex: Male

DRUGS (2)
  1. RAPTIVA [Suspect]
     Indication: PSORIASIS
     Dosage: UNK, 1/WEEK
     Route: 058
     Dates: start: 20060101, end: 20080301
  2. CYCLOSPORINE [Concomitant]
     Indication: PSORIASIS
     Dosage: UNK, PRN

REACTIONS (3)
  - METASTATIC MALIGNANT MELANOMA [None]
  - MULTI-ORGAN FAILURE [None]
  - SEPTIC SHOCK [None]
